FAERS Safety Report 9439883 (Version 1)
Quarter: 2013Q3

REPORT INFORMATION
  Report Type: Spontaneous
  Country: US (occurrence: US)
  Receive Date: 20130805
  Receipt Date: 20130805
  Transmission Date: 20140515
  Serious: Yes (Hospitalization, Other)
  Sender: FDA-Public Use
  Company Number: US-BAYER-2013-091778

PATIENT
  Age: 44 Year
  Sex: Female

DRUGS (3)
  1. YASMIN [Suspect]
  2. OCELLA [Suspect]
  3. DICLOFENAC [Concomitant]

REACTIONS (3)
  - Thrombophlebitis superficial [None]
  - Pulmonary embolism [None]
  - Deep vein thrombosis [None]
